FAERS Safety Report 11023378 (Version 5)
Quarter: 2017Q4

REPORT INFORMATION
  Report Type: Spontaneous
  Country: BR (occurrence: BR)
  Receive Date: 20150413
  Receipt Date: 20171220
  Transmission Date: 20180320
  Serious: Yes (Death, Hospitalization, Other)
  Sender: FDA-Public Use
  Company Number: BR-BIOMARINAP-BR-2015-106047

PATIENT
  Sex: Male
  Weight: 21 kg

DRUGS (1)
  1. NAGLAZYME [Suspect]
     Active Substance: GALSULFASE
     Indication: MUCOPOLYSACCHARIDOSIS VI
     Dosage: UNK, QW
     Route: 042
     Dates: start: 20120614

REACTIONS (8)
  - Septic shock [Unknown]
  - Pneumonia [Unknown]
  - Bronchospasm [Unknown]
  - Cough [Unknown]
  - Respiratory failure [Fatal]
  - Fatigue [Unknown]
  - Respiratory distress [Unknown]
  - Apnoea [Unknown]
